FAERS Safety Report 8504739-8 (Version None)
Quarter: 2012Q3

REPORT INFORMATION
  Report Type: 
  Country: None (occurrence: None)
  Receive Date: 20120712
  Receipt Date: 20120703
  Transmission Date: 20120928
  Serious: Yes (Death)
  Sender: FDA-Public Use
  Company Number: US-BRISTOL-MYERS SQUIBB COMPANY-16735706

PATIENT
  Age: 56 Year
  Sex: Male

DRUGS (1)
  1. AVAPRO [Suspect]

REACTIONS (1)
  - DEATH [None]
